FAERS Safety Report 6309198-1 (Version None)
Quarter: 2009Q3

REPORT INFORMATION
  Report Type: 
  Country: None (occurrence: None)
  Receive Date: 20090812
  Receipt Date: 20090803
  Transmission Date: 20100115
  Serious: Yes (Hospitalization)
  Sender: FDA-Public Use
  Company Number: 2009EU003068

PATIENT

DRUGS (2)
  1. PROGRAF [Suspect]
     Dosage: /D; TRANSPLACENTAL
     Route: 064
  2. CORTICOSTEROID NOS (CORTICOSTEROID NOS) [Concomitant]

REACTIONS (2)
  - MATERNAL DRUGS AFFECTING FOETUS [None]
  - PSEUDARTHROSIS [None]
